FAERS Safety Report 5970897-2 (Version None)
Quarter: 2008Q4

REPORT INFORMATION
  Report Type: 
  Country: None (occurrence: None)
  Receive Date: 20081128
  Receipt Date: 20081117
  Transmission Date: 20090506
  Serious: Yes (Other)
  Sender: FDA-Public Use
  Company Number: PHHY2008JP29067

PATIENT
  Age: 64 Year
  Sex: Male

DRUGS (5)
  1. LAMISIL [Suspect]
     Dosage: 125 MG/DAY
     Route: 048
     Dates: start: 20080901, end: 20081101
  2. TEGRETOL [Interacting]
     Indication: EPILEPSY
     Dosage: 4 DF/DAY
     Route: 048
  3. EXCEGRAN [Interacting]
     Indication: EPILEPSY
     Dosage: 4 DF/DAY
     Route: 048
  4. DIAZEPAM [Interacting]
     Dosage: 3 DF/DAY
     Route: 048
  5. ASPIRIN [Concomitant]
     Indication: EPILEPSY
     Dosage: 1DF
     Route: 048

REACTIONS (3)
  - ABNORMAL BEHAVIOUR [None]
  - DRUG INTERACTION [None]
  - EPILEPSY [None]
